FAERS Safety Report 11697385 (Version 1)
Quarter: 2015Q4

REPORT INFORMATION
  Report Type: Spontaneous
  Country: DE (occurrence: DE)
  Receive Date: 20151104
  Receipt Date: 20151104
  Transmission Date: 20160304
  Serious: Yes (Other)
  Sender: FDA-Public Use
  Company Number: DE-TEVA-604446GER

PATIENT
  Sex: Male

DRUGS (1)
  1. RAMIPRIL 5MG [Suspect]
     Active Substance: RAMIPRIL
     Route: 065
     Dates: start: 2014

REACTIONS (1)
  - Cerebrovascular accident [Unknown]

NARRATIVE: CASE EVENT DATE: 201503
